FAERS Safety Report 21918710 (Version 1)
Quarter: 2023Q1

REPORT INFORMATION
  Report Type: Spontaneous
  Country: US (occurrence: None)
  Receive Date: 20230126
  Receipt Date: 20230126
  Transmission Date: 20230417
  Serious: Yes (Hospitalization)
  Sender: FDA-Public Use
  Company Number: None

PATIENT
  Age: 74 Year
  Sex: Male
  Weight: 70.76 kg

DRUGS (14)
  1. EVEROLIMUS [Suspect]
     Active Substance: EVEROLIMUS
     Indication: Carcinoid tumour
     Dosage: FREQUENCY : DAILY;?
     Route: 048
  2. AMINO ACIDS/PROTEINS [Concomitant]
  3. AMLODIPINE [Concomitant]
     Active Substance: AMLODIPINE BESYLATE
  4. ASCORBIC ACID [Concomitant]
     Active Substance: ASCORBIC ACID
  5. CREON [Concomitant]
     Active Substance: PANCRELIPASE AMYLASE\PANCRELIPASE LIPASE\PANCRELIPASE PROTEASE
  6. HERBALS [Concomitant]
     Active Substance: HERBALS
  7. MUCINEX [Concomitant]
     Active Substance: GUAIFENESIN
  8. VITAMINS [Concomitant]
     Active Substance: VITAMINS
  9. OXYCODONE [Concomitant]
     Active Substance: OXYCODONE
  10. PROBIOTICS NOS [Concomitant]
     Active Substance: PROBIOTICS NOS
  11. ROBITUSSIN (GUAIFENESIN) [Concomitant]
     Active Substance: GUAIFENESIN
  12. VITAMIN D3 [Concomitant]
     Active Substance: CHOLECALCIFEROL
  13. ZICAM [Concomitant]
  14. ZINC [Concomitant]
     Active Substance: ZINC

REACTIONS (1)
  - Hospitalisation [None]
